FAERS Safety Report 6336767-5 (Version None)
Quarter: 2009Q3

REPORT INFORMATION
  Report Type: 
  Country: None (occurrence: None)
  Receive Date: 20090901
  Receipt Date: 20090819
  Transmission Date: 20100115
  Serious: Yes (Hospitalization)
  Sender: FDA-Public Use
  Company Number: US-PFIZER INC-2009252771

PATIENT
  Sex: Male
  Weight: 86.168 kg

DRUGS (13)
  1. BLINDED *NO SUBJECT DRUG [Suspect]
     Indication: CARDIOMYOPATHY
     Route: 048
  2. BLINDED *PLACEBO [Suspect]
     Indication: CARDIOMYOPATHY
     Route: 048
  3. BLINDED EPLERENONE [Suspect]
     Indication: CARDIOMYOPATHY
     Route: 048
  4. BLINDED *NO SUBJECT DRUG [Suspect]
     Indication: CARDIAC FAILURE
  5. BLINDED *PLACEBO [Suspect]
     Indication: CARDIAC FAILURE
  6. BLINDED EPLERENONE [Suspect]
     Indication: CARDIAC FAILURE
  7. ACETYLSALICYLIC ACID [Concomitant]
  8. PRAVASTATIN [Concomitant]
  9. LASIX [Concomitant]
  10. LISINOPRIL [Concomitant]
  11. COREG [Concomitant]
  12. K-DUR [Concomitant]
  13. XANAX [Concomitant]

REACTIONS (2)
  - HYPERKALAEMIA [None]
  - VENTRICULAR TACHYCARDIA [None]
